FAERS Safety Report 9228528 (Version 1)
Quarter: 2013Q1

REPORT INFORMATION
  Report Type: Spontaneous
  Country: US (occurrence: None)
  Receive Date: 20121010
  Receipt Date: 20121010
  Transmission Date: 20140127
  Serious: Yes (Death)
  Sender: FDA-Public Use
  Company Number: 2011POI057500025

PATIENT
  Age: 50 Year
  Sex: Male
  Weight: 97.52 kg

DRUGS (3)
  1. ROXICODONE ( OXYCODONE HYDROCHLORIDE) [Suspect]
     Dates: end: 20110201
  2. DARVON ( DEXTROPROPOXYPHENE HYDROCHLORIDE) [Suspect]
     Dates: end: 20110201
  3. OXYMORPHONE [Suspect]
     Dates: end: 20110201

REACTIONS (1)
  - Accidental overdose [None]
